FAERS Safety Report 15023725 (Version 2)
Quarter: 2020Q4

REPORT INFORMATION
  Report Type: Report from Study
  Country: US (occurrence: US)
  Receive Date: 20180618
  Receipt Date: 20201224
  Transmission Date: 20210113
  Serious: No
  Sender: FDA-Public Use
  Company Number: US-TAKEDA-2018TUS019598

PATIENT
  Sex: Female
  Weight: 54 kg

DRUGS (1)
  1. VEDOLIZUMAB [Suspect]
     Active Substance: VEDOLIZUMAB
     Indication: COLITIS ULCERATIVE
     Dosage: 300 MILLIGRAM, Q7WEEKS
     Route: 042

REACTIONS (4)
  - Drug level decreased [Unknown]
  - Pregnancy [Unknown]
  - Off label use [Unknown]
  - No adverse event [Unknown]
